FAERS Safety Report 8702831 (Version 2)
Quarter: 2014Q2

REPORT INFORMATION
  Report Type: Spontaneous
  Country: JP (occurrence: JP)
  Receive Date: 20120803
  Receipt Date: 20140407
  Transmission Date: 20141212
  Serious: Yes (Hospitalization)
  Sender: FDA-Public Use
  Company Number: JP-JNJFOC-20120714290

PATIENT
  Age: 56 Year
  Sex: Female

DRUGS (9)
  1. PREZISTA [Suspect]
     Indication: ANTIRETROVIRAL THERAPY
     Route: 048
  2. TENOFOVIR/EMTRICITABINE [Suspect]
     Indication: HIV INFECTION
     Route: 048
  3. RITONAVIR [Suspect]
     Indication: HIV INFECTION
     Route: 065
  4. DARUNAVIR [Suspect]
     Indication: HIV INFECTION
     Route: 048
  5. PREDNISOLONE [Suspect]
     Indication: DRUG ERUPTION
     Route: 048
  6. PREDNISOLONE [Suspect]
     Indication: DRUG ERUPTION
     Route: 048
  7. SULFAMETHOXAZOLE AND TRIMETHOPRIM [Suspect]
     Indication: ANTIFUNGAL PROPHYLAXIS
     Route: 065
  8. ANTIHISTAMINES [Suspect]
     Indication: DRUG ERUPTION
     Route: 065
  9. ADRENOCORTICAL HORMONE [Suspect]
     Indication: DRUG ERUPTION
     Route: 061

REACTIONS (6)
  - Drug eruption [Recovering/Resolving]
  - Diabetes mellitus [Unknown]
  - Pyrexia [Unknown]
  - Malaise [Unknown]
  - Flushing [Recovering/Resolving]
  - Hypertrophy [Recovering/Resolving]
